FAERS Safety Report 8184426-9 (Version None)
Quarter: 2012Q1

REPORT INFORMATION
  Report Type: 
  Country: None (occurrence: None)
  Receive Date: 20120305
  Receipt Date: 20120222
  Transmission Date: 20120608
  Serious: Yes (Hospitalization)
  Sender: FDA-Public Use
  Company Number: DE-JNJFOC-20120212828

PATIENT
  Age: 79 Year
  Sex: Female

DRUGS (5)
  1. METHOTREXATE [Suspect]
     Indication: PRODUCT USED FOR UNKNOWN INDICATION
     Route: 065
     Dates: end: 20111219
  2. METFORMIN HCL [Suspect]
     Indication: PRODUCT USED FOR UNKNOWN INDICATION
     Route: 048
     Dates: end: 20111223
  3. HALOPERIDOL [Suspect]
     Indication: PRODUCT USED FOR UNKNOWN INDICATION
     Dosage: DUE TO PATIENT INCOMPLIANCE, MEDICATION WITH HALOPERIDOL WAS IRREGULAR
     Route: 048
     Dates: start: 20111216, end: 20111223
  4. RAMIPRIL [Concomitant]
     Route: 048
     Dates: end: 20111230
  5. PANTOPRAZOLE [Concomitant]
     Route: 048
     Dates: end: 20120125

REACTIONS (2)
  - HEPATOTOXICITY [None]
  - PANCREATIC ENZYMES INCREASED [None]
